FAERS Safety Report 5571151-3 (Version None)
Quarter: 2007Q4

REPORT INFORMATION
  Report Type: 
  Country: None (occurrence: None)
  Receive Date: 20071221
  Receipt Date: 20061121
  Transmission Date: 20080405
  Serious: No
  Sender: FDA-Public Use
  Company Number: A0628310A

PATIENT
  Sex: Male

DRUGS (15)
  1. FLUTICASONE PROPIONATE [Suspect]
     Indication: EUSTACHIAN TUBE DISORDER
     Dosage: 2SPR VARIABLE DOSE
     Route: 045
     Dates: start: 20061114
  2. ADVAIR DISKUS 100/50 [Concomitant]
  3. NORVASC [Concomitant]
  4. TENORMIN [Concomitant]
  5. COZAAR [Concomitant]
  6. ZETIA [Concomitant]
  7. NEXIUM [Concomitant]
  8. TRAVASOL 10% [Concomitant]
  9. MUCINEX [Concomitant]
  10. CEFAZOLIN [Concomitant]
  11. FLEXERIL [Concomitant]
  12. MG OXIDE [Concomitant]
  13. ONE A DAY VITAMINS [Concomitant]
  14. ASCORBIC ACID [Concomitant]
  15. VITAMIN D [Concomitant]

REACTIONS (1)
  - DRUG INEFFECTIVE [None]
